FAERS Safety Report 6004597-X (Version None)
Quarter: 2008Q4

REPORT INFORMATION
  Report Type: 
  Country: None (occurrence: None)
  Receive Date: 20081216
  Receipt Date: 20080409
  Transmission Date: 20090506
  Serious: No
  Sender: FDA-Public Use
  Company Number: US-BRISTOL-MYERS SQUIBB COMPANY-14145056

PATIENT
  Age: 78 Year
  Sex: Female

DRUGS (5)
  1. PRAVACHOL [Suspect]
  2. LIPITOR [Suspect]
  3. CRESTOR [Concomitant]
  4. ZETIA [Concomitant]
  5. ASPIRIN [Concomitant]

REACTIONS (1)
  - MUSCULOSKELETAL PAIN [None]
